FAERS Safety Report 20884902 (Version 16)
Quarter: 2025Q2

REPORT INFORMATION
  Report Type: Spontaneous
  Country: CA (occurrence: CA)
  Receive Date: 20220527
  Receipt Date: 20250421
  Transmission Date: 20250717
  Serious: Yes (Death, Life-Threatening, Hospitalization, Disabling, Other)
  Sender: SANOFI AVENTIS
  Company Number: None

PATIENT
  Age: 44 Year
  Sex: Female
  Weight: 97 kg

DRUGS (76)
  1. KEVZARA [Suspect]
     Active Substance: SARILUMAB
  2. TOPICORT [Suspect]
     Active Substance: DESOXIMETASONE
     Indication: Rheumatoid arthritis
     Route: 048
  3. TOPICORT [Suspect]
     Active Substance: DESOXIMETASONE
     Route: 048
  4. TOPICORT [Suspect]
     Active Substance: DESOXIMETASONE
     Route: 003
  5. TOPICORT [Suspect]
     Active Substance: DESOXIMETASONE
     Route: 048
  6. TOPICORT [Suspect]
     Active Substance: DESOXIMETASONE
     Route: 016
  7. TOPICORT [Suspect]
     Active Substance: DESOXIMETASONE
     Route: 065
  8. TOPICORT [Suspect]
     Active Substance: DESOXIMETASONE
     Route: 067
  9. HYDROCORTISONE [Suspect]
     Active Substance: HYDROCORTISONE
     Indication: Product used for unknown indication
  10. LEFLUNOMIDE [Suspect]
     Active Substance: LEFLUNOMIDE
     Indication: Product used for unknown indication
  11. PLAQUENIL [Suspect]
     Active Substance: HYDROXYCHLOROQUINE SULFATE
     Dosage: 400 MG, QD
     Route: 065
  12. PLAQUENIL [Suspect]
     Active Substance: HYDROXYCHLOROQUINE SULFATE
     Dosage: 4000 MG, QD
     Route: 049
  13. PLAQUENIL [Suspect]
     Active Substance: HYDROXYCHLOROQUINE SULFATE
     Dosage: 400 MG, QD
     Route: 048
  14. PLAQUENIL [Suspect]
     Active Substance: HYDROXYCHLOROQUINE SULFATE
     Route: 048
  15. PLAQUENIL [Suspect]
     Active Substance: HYDROXYCHLOROQUINE SULFATE
     Dosage: 400 MG, QD
     Route: 005
  16. ACETAMINOPHEN [Suspect]
     Active Substance: ACETAMINOPHEN
  17. PREDNISONE [Suspect]
     Active Substance: PREDNISONE
     Indication: Product used for unknown indication
     Route: 048
  18. PREDNISONE [Suspect]
     Active Substance: PREDNISONE
     Route: 048
  19. ARAVA [Suspect]
     Active Substance: LEFLUNOMIDE
     Indication: Rheumatoid arthritis
  20. FOLIC ACID [Suspect]
     Active Substance: FOLIC ACID
     Indication: Product used for unknown indication
  21. FOLIC ACID [Suspect]
     Active Substance: FOLIC ACID
     Dosage: 1 MG, QD
     Route: 048
  22. FOLIC ACID [Suspect]
     Active Substance: FOLIC ACID
     Route: 049
  23. FOLIC ACID [Suspect]
     Active Substance: FOLIC ACID
     Dosage: 1 MG, QD
     Route: 048
  24. FOLIC ACID [Suspect]
     Active Substance: FOLIC ACID
     Route: 065
  25. FOLIC ACID [Suspect]
     Active Substance: FOLIC ACID
     Route: 065
  26. FOLIC ACID [Suspect]
     Active Substance: FOLIC ACID
     Route: 065
  27. FOLIC ACID [Suspect]
     Active Substance: FOLIC ACID
     Route: 065
  28. FOLIC ACID [Suspect]
     Active Substance: FOLIC ACID
     Route: 065
  29. METHOTREXATE [Suspect]
     Active Substance: METHOTREXATE
     Indication: Rheumatoid arthritis
     Route: 048
  30. METHOTREXATE [Suspect]
     Active Substance: METHOTREXATE
     Dosage: 15 MG, QD
     Route: 048
  31. METHOTREXATE [Suspect]
     Active Substance: METHOTREXATE
     Route: 048
  32. METHOTREXATE [Suspect]
     Active Substance: METHOTREXATE
     Dosage: 20 MG, QD
     Route: 058
  33. METHOTREXATE [Suspect]
     Active Substance: METHOTREXATE
     Route: 048
  34. METHOTREXATE [Suspect]
     Active Substance: METHOTREXATE
     Dosage: 20 MG, QD
     Route: 058
  35. METHOTREXATE [Suspect]
     Active Substance: METHOTREXATE
     Dosage: 25 MG, QD
     Route: 048
  36. METHOTREXATE [Suspect]
     Active Substance: METHOTREXATE
     Route: 013
  37. METHOTREXATE [Suspect]
     Active Substance: METHOTREXATE
     Route: 016
  38. METHOTREXATE [Suspect]
     Active Substance: METHOTREXATE
     Route: 058
  39. METHOTREXATE [Suspect]
     Active Substance: METHOTREXATE
     Route: 013
  40. SULFASALAZINE [Suspect]
     Active Substance: SULFASALAZINE
     Indication: Rheumatoid arthritis
     Route: 048
  41. SULFASALAZINE [Suspect]
     Active Substance: SULFASALAZINE
     Route: 058
  42. SULFASALAZINE [Suspect]
     Active Substance: SULFASALAZINE
     Dosage: 2000 MG, QD
     Route: 048
  43. SULFASALAZINE [Suspect]
     Active Substance: SULFASALAZINE
     Route: 058
  44. LANSOPRAZOLE [Suspect]
     Active Substance: LANSOPRAZOLE
     Indication: Rheumatoid arthritis
     Route: 048
  45. MESALAMINE [Suspect]
     Active Substance: MESALAMINE
     Indication: Crohn^s disease
  46. PREVACID [Suspect]
     Active Substance: LANSOPRAZOLE
  47. ASCORBIC ACID [Suspect]
     Active Substance: ASCORBIC ACID
  48. LORAZEPAM [Suspect]
     Active Substance: LORAZEPAM
     Indication: Rheumatoid arthritis
  49. ERYTHROMYCIN [Suspect]
     Active Substance: ERYTHROMYCIN
  50. MELOXICAM [Suspect]
     Active Substance: MELOXICAM
     Indication: Product used for unknown indication
  51. MELOXICAM [Suspect]
     Active Substance: MELOXICAM
     Route: 048
  52. PREGABALIN [Suspect]
     Active Substance: PREGABALIN
  53. PIROXICAM [Suspect]
     Active Substance: PIROXICAM
  54. ALBUTEROL SULFATE [Suspect]
     Active Substance: ALBUTEROL SULFATE
  55. ERGOCALCIFEROL [Suspect]
     Active Substance: ERGOCALCIFEROL
     Indication: Rheumatoid arthritis
  56. ALENDRONATE SODIUM [Suspect]
     Active Substance: ALENDRONATE SODIUM
     Indication: Product used for unknown indication
     Route: 016
  57. ALENDRONATE SODIUM [Suspect]
     Active Substance: ALENDRONATE SODIUM
     Route: 048
  58. ALENDRONATE SODIUM [Suspect]
     Active Substance: ALENDRONATE SODIUM
     Route: 065
  59. CALCIUM CARBONATE [Suspect]
     Active Substance: CALCIUM CARBONATE
     Indication: Product used for unknown indication
     Route: 016
  60. CELECOXIB [Suspect]
     Active Substance: CELECOXIB
     Indication: Product used for unknown indication
     Dosage: 1 DF, QD
  61. CELECOXIB [Suspect]
     Active Substance: CELECOXIB
     Dosage: 2 DF, QD
     Route: 048
  62. CELECOXIB [Suspect]
     Active Substance: CELECOXIB
     Route: 065
  63. CELECOXIB [Suspect]
     Active Substance: CELECOXIB
     Route: 058
  64. CORTISONE ACETATE [Suspect]
     Active Substance: CORTISONE ACETATE
     Indication: Product used for unknown indication
     Route: 003
  65. DICLOFENAC SODIUM [Suspect]
     Active Substance: DICLOFENAC SODIUM
     Indication: Product used for unknown indication
     Route: 058
  66. DICLOFENAC SODIUM [Suspect]
     Active Substance: DICLOFENAC SODIUM
     Dosage: 50 MG, QD
  67. DILTIAZEM HYDROCHLORIDE [Suspect]
     Active Substance: DILTIAZEM HYDROCHLORIDE
     Indication: Product used for unknown indication
     Route: 042
  68. FRAMYCETIN SULFATE [Suspect]
     Active Substance: FRAMYCETIN SULFATE
     Indication: Product used for unknown indication
  69. METHYLPREDNISOLONE SODIUM SUCCINATE [Suspect]
     Active Substance: METHYLPREDNISOLONE SODIUM SUCCINATE
     Indication: Product used for unknown indication
     Route: 048
  70. MORPHINE SULFATE [Suspect]
     Active Substance: MORPHINE SULFATE
     Indication: Product used for unknown indication
  71. MYCOPHENOLATE MOFETIL [Suspect]
     Active Substance: MYCOPHENOLATE MOFETIL
     Indication: Product used for unknown indication
     Route: 065
  72. NAPROXEN SODIUM [Suspect]
     Active Substance: NAPROXEN SODIUM
     Indication: Product used for unknown indication
     Dosage: 1000 MG, QD
  73. NAPROXEN SODIUM [Suspect]
     Active Substance: NAPROXEN SODIUM
  74. SULFAMETHOXAZOLE\TRIMETHOPRIM [Suspect]
     Active Substance: SULFAMETHOXAZOLE\TRIMETHOPRIM
     Indication: Product used for unknown indication
     Route: 067
  75. TRAMADOL HYDROCHLORIDE [Suspect]
     Active Substance: TRAMADOL HYDROCHLORIDE
     Indication: Product used for unknown indication
  76. TRIAMCINOLONE ACETONIDE [Suspect]
     Active Substance: TRIAMCINOLONE ACETONIDE
     Indication: Product used for unknown indication
     Route: 014

REACTIONS (31)
  - Hepatic cirrhosis [Fatal]
  - Autoimmune disorder [Fatal]
  - Breast cancer stage III [Fatal]
  - Crohn^s disease [Fatal]
  - Deep vein thrombosis postoperative [Fatal]
  - Disability [Fatal]
  - Dislocation of vertebra [Fatal]
  - Drug-induced liver injury [Fatal]
  - Duodenal ulcer perforation [Fatal]
  - Liver injury [Fatal]
  - Lupus vulgaris [Fatal]
  - Lupus-like syndrome [Fatal]
  - Pemphigus [Fatal]
  - Pericarditis [Fatal]
  - Pneumonia [Fatal]
  - Psoriatic arthropathy [Fatal]
  - Pulmonary fibrosis [Fatal]
  - Retinitis [Fatal]
  - Rheumatic fever [Fatal]
  - Rheumatoid arthritis [Fatal]
  - Seronegative arthritis [Fatal]
  - Systemic lupus erythematosus [Fatal]
  - Type 2 diabetes mellitus [Fatal]
  - Prescribed overdose [Fatal]
  - Drug ineffective [Fatal]
  - Product use in unapproved indication [Fatal]
  - Prescribed underdose [Fatal]
  - Product use issue [Fatal]
  - Product quality issue [Fatal]
  - Intentional product use issue [Fatal]
  - Maternal exposure during pregnancy [Fatal]
